FAERS Safety Report 5228348-1 (Version None)
Quarter: 2007Q1

REPORT INFORMATION
  Report Type: 
  Country: None (occurrence: None)
  Receive Date: 20070131
  Receipt Date: 20070131
  Transmission Date: 20070707
  Serious: Yes (Other)
  Sender: FDA-Public Use
  Company Number: None

PATIENT
  Sex: Female
  Weight: 76.6579 kg

DRUGS (1)
  1. MIRENA [Suspect]
     Indication: CONTRACEPTION
     Route: 015
     Dates: start: 20050901, end: 20070101

REACTIONS (10)
  - ACNE CYSTIC [None]
  - ALOPECIA [None]
  - ASTHENIA [None]
  - BACK PAIN [None]
  - DEPRESSION [None]
  - LIBIDO DECREASED [None]
  - MARITAL PROBLEM [None]
  - SELF ESTEEM DECREASED [None]
  - SKIN DISORDER [None]
  - WEIGHT INCREASED [None]
